FAERS Safety Report 11620703 (Version 1)
Quarter: 2015Q4

REPORT INFORMATION
  Report Type: Spontaneous
  Country: US (occurrence: US)
  Receive Date: 20151012
  Receipt Date: 20151012
  Transmission Date: 20160304
  Serious: Yes (Other)
  Sender: FDA-Public Use
  Company Number: US-IPCA LABORATORIES LIMITED-IPC201508-000562

PATIENT

DRUGS (1)
  1. HYDROXYCHLOROQUINE SULFATE. [Suspect]
     Active Substance: HYDROXYCHLOROQUINE SULFATE
     Indication: UNDIFFERENTIATED CONNECTIVE TISSUE DISEASE
     Dates: start: 2012, end: 201504

REACTIONS (9)
  - Condition aggravated [Unknown]
  - Vision blurred [Recovered/Resolved]
  - Product substitution issue [Unknown]
  - Anaemia [Unknown]
  - Mouth ulceration [Recovered/Resolved]
  - Pharyngeal inflammation [Recovered/Resolved]
  - Alopecia [Recovered/Resolved]
  - Drug ineffective for unapproved indication [Unknown]
  - Haemorrhage [Unknown]
